FAERS Safety Report 10052324 (Version 3)
Quarter: 2014Q2

REPORT INFORMATION
  Report Type: Report from Study
  Country: HU (occurrence: HU)
  Receive Date: 20140402
  Receipt Date: 20140409
  Transmission Date: 20141212
  Serious: Yes (Other)
  Sender: FDA-Public Use
  Company Number: HU-JNJFOC-20130910198

PATIENT
  Age: 43 Year
  Sex: Female

DRUGS (4)
  1. STELARA [Suspect]
     Indication: PRODUCT USED FOR UNKNOWN INDICATION
     Route: 058
     Dates: start: 20130723, end: 20140228
  2. STELARA [Suspect]
     Indication: PRODUCT USED FOR UNKNOWN INDICATION
     Route: 058
     Dates: start: 20130723
  3. STELARA [Suspect]
     Indication: PSORIASIS
     Route: 058
     Dates: start: 20130723, end: 20140228
  4. STELARA [Suspect]
     Indication: PSORIASIS
     Route: 058
     Dates: start: 20130723

REACTIONS (7)
  - Eye haemorrhage [Recovered/Resolved]
  - Ocular discomfort [Recovered/Resolved]
  - Herpes virus infection [Unknown]
  - Upper respiratory tract infection [Unknown]
  - Arthralgia [Unknown]
  - Discomfort [Unknown]
  - Influenza [Recovered/Resolved]
